FAERS Safety Report 20043147 (Version 5)
Quarter: 2021Q4

REPORT INFORMATION
  Report Type: Spontaneous
  Country: TR (occurrence: TR)
  Receive Date: 20211108
  Receipt Date: 20211122
  Transmission Date: 20220303
  Serious: Yes (Other)
  Sender: FDA-Public Use
  Company Number: TR-NOVARTISPH-NVSC2021TR232823

PATIENT
  Sex: Female
  Weight: 65 kg

DRUGS (3)
  1. GILENYA [Suspect]
     Active Substance: FINGOLIMOD HYDROCHLORIDE
     Indication: Multiple sclerosis
     Dosage: UNK
     Route: 048
     Dates: start: 2018
  2. ASPIRIN [Concomitant]
     Active Substance: ASPIRIN
     Indication: Product used for unknown indication
     Dosage: UNK
     Route: 065
  3. CLOPIDOGREL [Concomitant]
     Active Substance: CLOPIDOGREL BISULFATE
     Indication: Product used for unknown indication
     Dosage: UNK
     Route: 065

REACTIONS (9)
  - Progressive multifocal leukoencephalopathy [Recovered/Resolved with Sequelae]
  - Hemiparesis [Unknown]
  - Clumsiness [Unknown]
  - Personality change [Unknown]
  - Dysarthria [Unknown]
  - Asthenia [Unknown]
  - Headache [Unknown]
  - Multiple sclerosis [Unknown]
  - Haemorrhage [Unknown]
